FAERS Safety Report 12445156 (Version 1)
Quarter: 2016Q2

REPORT INFORMATION
  Report Type: Spontaneous
  Country: None (occurrence: US)
  Receive Date: 20160607
  Receipt Date: 20160607
  Transmission Date: 20160815
  Serious: No
  Sender: FDA-Public Use
  Company Number: US-MATRIXX INITIATIVES, INC.-1053461

PATIENT
  Age: 32 Year
  Sex: Female
  Weight: 43.18 kg

DRUGS (1)
  1. ZICAM COLD REMEDY RAPIDMELTS WITH ECHINACEA [Suspect]
     Active Substance: ECHINACEA ANGUSTIFOLIA\ZINC ACETATE ANHYDROUS\ZINC GLUCONATE
     Route: 048
     Dates: start: 20160605, end: 20160605

REACTIONS (1)
  - Ageusia [None]
